FAERS Safety Report 12607148 (Version 1)
Quarter: 2016Q3

REPORT INFORMATION
  Report Type: Spontaneous
  Country: HU (occurrence: HU)
  Receive Date: 20160729
  Receipt Date: 20160729
  Transmission Date: 20161109
  Serious: Yes (Other)
  Sender: FDA-Public Use
  Company Number: HU-PFIZER INC-2016359460

PATIENT
  Sex: Male

DRUGS (9)
  1. CORDARONE [Suspect]
     Active Substance: AMIODARONE HYDROCHLORIDE
     Dosage: 200 MG, DAILY
     Route: 048
  2. FRONTIN [Suspect]
     Active Substance: ALPRAZOLAM
     Dosage: UNK (0.25 MG TABLETS HALF TABLET IN THE MORNING AND 1 TABLET IN THE EVENING)
     Route: 048
  3. ULPRIX [Suspect]
     Active Substance: PANTOPRAZOLE SODIUM
     Dosage: 40 MG, DAILY (1 TABLETS IN THE EVENING)
     Route: 048
  4. SICOR [Suspect]
     Active Substance: SIMVASTATIN
     Dosage: 20 MG, DAILY (1 TABLET IN THE EVENING)
     Route: 048
  5. COVEREX AS [Suspect]
     Active Substance: PERINDOPRIL ARGININE
     Dosage: UNK (5 MG HALF TABLET IN THE MORNING AND 1 TABLET IN THE EVENING)
     Route: 048
  6. MODUXIN MR [Suspect]
     Active Substance: TRIMETAZIDINE DIHYDROCHLORIDE
     Dosage: 35 MG, DAILY (1 TABLET IN THE MORNING)
     Route: 048
  7. SYNCUMAR [Suspect]
     Active Substance: ACENOCOUMAROL
     Dosage: 2.5 MG, DAILY (IN THE EVENING)
     Route: 048
  8. BISOPROLOL SANDOZ [Suspect]
     Active Substance: BISOPROLOL
     Dosage: UNK (5 MG TABLET HALF TABLET IN THE MORNING AND 1 TABLET IN THE EVENING)
     Route: 048
  9. OLICARD [Suspect]
     Active Substance: ISOSORBIDE MONONITRATE
     Dosage: 40 MG, DAILY (1 TABLET IN THE MORNING)
     Route: 048

REACTIONS (9)
  - Malaise [Not Recovered/Not Resolved]
  - Hypotension [Not Recovered/Not Resolved]
  - Dizziness postural [Not Recovered/Not Resolved]
  - Fatigue [Not Recovered/Not Resolved]
  - Heart rate increased [Not Recovered/Not Resolved]
  - Arrhythmia [Not Recovered/Not Resolved]
  - Constipation [Not Recovered/Not Resolved]
  - Presyncope [Not Recovered/Not Resolved]
  - Sleep disorder [Not Recovered/Not Resolved]
